FAERS Safety Report 5880227-2 (Version None)
Quarter: 2008Q3

REPORT INFORMATION
  Report Type: 
  Country: None (occurrence: None)
  Receive Date: 20080912
  Receipt Date: 20080902
  Transmission Date: 20090109
  Serious: Yes (Other)
  Sender: FDA-Public Use
  Company Number: FR-PFIZER INC-2008074309

PATIENT
  Sex: Female

DRUGS (1)
  1. ZITHROMAX [Suspect]

REACTIONS (8)
  - BURN OF INTERNAL ORGANS [None]
  - CHEST PAIN [None]
  - CHILLS [None]
  - FEELING COLD [None]
  - HOT FLUSH [None]
  - LEUKOCYTOSIS [None]
  - SWELLING [None]
  - VAGINAL INFLAMMATION [None]
